FAERS Safety Report 9759296 (Version 1)
Quarter: 2013Q4

REPORT INFORMATION
  Report Type: Spontaneous
  Country: US (occurrence: None)
  Receive Date: 20131216
  Receipt Date: 20131216
  Transmission Date: 20140711
  Serious: Yes (Hospitalization, Other)
  Sender: FDA-Public Use
  Company Number: 163-21880-12052295 (0)

PATIENT
  Age: 70 Year
  Sex: Male
  Weight: 68 kg

DRUGS (1)
  1. REVLIMID [Suspect]
     Dosage: 25 MG, 1 IN 1 D, PO?10 MG, 1 IN 1 D, PO ?10 MG, 21 IN 21 D, PO? ? ? ?

REACTIONS (3)
  - Bacterial infection [None]
  - White blood cell count decreased [None]
  - Hypotension [None]
